FAERS Safety Report 4338276-1 (Version None)
Quarter: 2004Q2

REPORT INFORMATION
  Report Type: 
  Country: None (occurrence: None)
  Receive Date: 20040414
  Receipt Date: 20040402
  Transmission Date: 20050107
  Serious: Yes (Other)
  Sender: FDA-Public Use
  Company Number: CH-BRISTOL-MYERS SQUIBB COMPANY-12553350

PATIENT
  Age: 59 Year
  Sex: Female

DRUGS (6)
  1. GLUCOPHAGE [Suspect]
     Indication: DIABETES MELLITUS
     Route: 048
  2. ATENO-BASAN [Suspect]
     Indication: HYPERTENSION
     Dosage: DURATION OF THERAPY:  ^YEARS^
     Route: 048
  3. COMILORID [Suspect]
     Indication: HYPERTENSION
     Dosage: DURATION OF THERAPY:  ^YEARS^
     Route: 048
  4. ASPIRIN CARDIO [Suspect]
     Dosage: DURATION OF THERAPY:  ^YEARS^
     Route: 048
  5. CALCIMAGON [Concomitant]
     Dosage: DURATION OF THERAPY:  ^YEARS^
     Route: 048
  6. BRONCHO-VAXOM [Concomitant]
     Indication: PROPHYLAXIS
     Dosage: THERAPY FROM:  ^AUTMUM-2003^
     Dates: start: 20030101

REACTIONS (2)
  - LIPODYSTROPHY ACQUIRED [None]
  - PANNICULITIS [None]
